FAERS Safety Report 12386914 (Version 1)
Quarter: 2016Q2

REPORT INFORMATION
  Report Type: Spontaneous
  Country: GB (occurrence: GB)
  Receive Date: 20160519
  Receipt Date: 20160519
  Transmission Date: 20160815
  Serious: Yes (Life-Threatening, Hospitalization)
  Sender: FDA-Public Use
  Company Number: PHHY2016GB066281

PATIENT
  Age: 58 Year
  Sex: Female
  Weight: 100 kg

DRUGS (1)
  1. LEFLUNOMIDE. [Suspect]
     Active Substance: LEFLUNOMIDE
     Indication: PSORIATIC ARTHROPATHY
     Route: 065

REACTIONS (2)
  - Atrial thrombosis [Recovering/Resolving]
  - Pulmonary artery thrombosis [Recovering/Resolving]
